FAERS Safety Report 10809913 (Version 1)
Quarter: 2015Q1

REPORT INFORMATION
  Report Type: Spontaneous
  Country: US (occurrence: None)
  Receive Date: 20150212
  Receipt Date: 20150212
  Transmission Date: 20150721
  Serious: Yes (Hospitalization)
  Sender: FDA-Public Use
  Company Number: None

PATIENT
  Age: 88 Year
  Sex: Male
  Weight: 72.6 kg

DRUGS (12)
  1. DONEPEZIL [Concomitant]
     Active Substance: DONEPEZIL
  2. DOCUSATE SODIUM. [Concomitant]
     Active Substance: DOCUSATE SODIUM
  3. LIPITOR [Concomitant]
     Active Substance: ATORVASTATIN CALCIUM
  4. ALUMINUM-MAGNESIUM HYDROXIDE-SIMETHICONE (MAALOX ADVANCED) [Concomitant]
  5. TYLENOL [Concomitant]
     Active Substance: ACETAMINOPHEN
  6. ASPIRIN. [Concomitant]
     Active Substance: ASPIRIN
  7. LEVOFLOXACIN 500 MG [Suspect]
     Active Substance: LEVOFLOXACIN
     Indication: PNEUMONIA
     Dosage: 1 TABLET QD ORAL
     Route: 048
     Dates: start: 20141201, end: 20141202
  8. INSULIN GLULISINE (APIDRA) [Concomitant]
  9. LANTUS [Concomitant]
     Active Substance: INSULIN GLARGINE
  10. IPRATROPIUM-ALBUTEROL (DUONEB) [Concomitant]
  11. MAGNESIUM HYDROXIDE (MILK OF MAGNESIA) [Concomitant]
  12. BISACODYL (BISAC-EVAC) [Concomitant]

REACTIONS (3)
  - Loss of consciousness [None]
  - Dyskinesia [None]
  - Generalised tonic-clonic seizure [None]

NARRATIVE: CASE EVENT DATE: 20141202
